FAERS Safety Report 5707586-5 (Version None)
Quarter: 2008Q2

REPORT INFORMATION
  Report Type: 
  Country: None (occurrence: None)
  Receive Date: 20080411
  Receipt Date: 20070209
  Transmission Date: 20081010
  Serious: Yes (Other)
  Sender: FDA-Public Use
  Company Number: 8021892

PATIENT
  Age: 12 Year
  Sex: Male

DRUGS (2)
  1. METADATE CD [Suspect]
     Dosage: 20 MG 1/D
     Dates: start: 20050101, end: 20060101
  2. METADATE CD [Suspect]
     Dosage: 20 MG 2/D
     Dates: start: 20060101

REACTIONS (2)
  - ABNORMAL BEHAVIOUR [None]
  - DRUG INEFFECTIVE [None]
